FAERS Safety Report 9638756 (Version 1)
Quarter: 2013Q4

REPORT INFORMATION
  Report Type: Spontaneous
  Country: US (occurrence: US)
  Receive Date: 20131022
  Receipt Date: 20131022
  Transmission Date: 20140711
  Serious: No
  Sender: FDA-Public Use
  Company Number: US-BRISTOL-MYERS SQUIBB COMPANY-19211788

PATIENT
  Age: 76 Year
  Sex: Male
  Weight: 79.36 kg

DRUGS (8)
  1. ELIQUIS [Suspect]
     Indication: ATRIAL FIBRILLATION
     Dates: start: 201304
  2. PROPRANOLOL [Concomitant]
  3. PAROXETINE [Concomitant]
  4. ASPIRIN [Concomitant]
  5. NIASPAN [Concomitant]
  6. FISH OIL [Concomitant]
  7. ATORVASTATIN [Concomitant]
  8. LEVOTHYROXINE [Concomitant]

REACTIONS (2)
  - Tooth fracture [Unknown]
  - Gingival bleeding [Unknown]
